FAERS Safety Report 6393996-2 (Version None)
Quarter: 2009Q4

REPORT INFORMATION
  Report Type: 
  Country: None (occurrence: None)
  Receive Date: 20091008
  Receipt Date: 20090925
  Transmission Date: 20100525
  Serious: Yes (Hospitalization)
  Sender: FDA-Public Use
  Company Number: JP-PFIZER INC-2009242923

PATIENT
  Age: 71 Year

DRUGS (6)
  1. MIGLITOL [Suspect]
     Indication: TYPE 2 DIABETES MELLITUS
     Dosage: UNK MG, UNK
     Route: 048
     Dates: start: 20090420, end: 20090708
  2. GLUCOBAY [Suspect]
     Indication: DIABETES MELLITUS
     Dosage: UNK MG, UNK
     Route: 048
     Dates: start: 20090123
  3. GASMOTIN [Concomitant]
     Indication: CONSTIPATION
     Dosage: DOSE: 15MG
     Route: 048
     Dates: start: 20090110, end: 20090712
  4. MITIGLINIDE [Concomitant]
     Indication: TYPE 2 DIABETES MELLITUS
     Dosage: DOSE: 15MG
     Route: 048
     Dates: start: 20090615, end: 20090708
  5. MAGNESIUM OXIDE [Concomitant]
     Indication: CONSTIPATION
     Dosage: DOSE: 990MG
     Route: 048
     Dates: start: 20090110
  6. MINOPEN [Concomitant]
     Indication: URETHRITIS
     Dosage: DOSE: 100MG
     Route: 048
     Dates: start: 20090430, end: 20090514

REACTIONS (2)
  - HEPATIC FUNCTION ABNORMAL [None]
  - LIVER FUNCTION TEST ABNORMAL [None]
